FAERS Safety Report 18968090 (Version 15)
Quarter: 2022Q4

REPORT INFORMATION
  Report Type: Report from Study
  Country: AR (occurrence: AR)
  Receive Date: 20210304
  Receipt Date: 20221128
  Transmission Date: 20230113
  Serious: Yes (Life-Threatening, Other)
  Sender: FDA-Public Use
  Company Number: NVSC2021AR045493

PATIENT
  Age: 79 Year
  Sex: Male

DRUGS (9)
  1. COSENTYX [Suspect]
     Active Substance: SECUKINUMAB
     Indication: Psoriasis
     Dosage: 300 MG, QMO
     Route: 058
     Dates: start: 20160210
  2. COSENTYX [Suspect]
     Active Substance: SECUKINUMAB
     Dosage: 300 MG, QMO
     Route: 058
  3. ALPRAZOLAM [Suspect]
     Active Substance: ALPRAZOLAM
     Indication: Sleep disorder
     Dosage: 1 MG, UNKNOWN
     Route: 065
  4. ALPRAZOLAM [Suspect]
     Active Substance: ALPRAZOLAM
     Dosage: 0.5 MG, UNKNOWN
     Route: 065
  5. AMLODIPINE BESYLATE [Concomitant]
     Active Substance: AMLODIPINE BESYLATE
     Indication: Product used for unknown indication
     Dosage: 10 MG, QD
     Route: 065
  6. AMLODIPINE BESYLATE [Concomitant]
     Active Substance: AMLODIPINE BESYLATE
     Dosage: UNK
     Route: 065
  7. PAXON [Concomitant]
     Indication: Product used for unknown indication
     Dosage: 5 MG, QD
     Route: 065
  8. PAXON [Concomitant]
     Dosage: UNK
     Route: 065
  9. TANSILOPROST DUO [Concomitant]
     Indication: Product used for unknown indication
     Dosage: UNK (FOR A YEAR)
     Route: 065

REACTIONS (19)
  - Syncope [Recovered/Resolved]
  - Fall [Recovered/Resolved]
  - Aortic valve stenosis [Unknown]
  - Blindness [Not Recovered/Not Resolved]
  - Cataract [Unknown]
  - Vision blurred [Unknown]
  - Cardiac disorder [Unknown]
  - Memory impairment [Not Recovered/Not Resolved]
  - Amnesia [Not Recovered/Not Resolved]
  - Injury [Unknown]
  - Mass [Unknown]
  - Prostatic disorder [Unknown]
  - Dysuria [Unknown]
  - Hypersensitivity [Unknown]
  - Sneezing [Unknown]
  - Movement disorder [Unknown]
  - Condition aggravated [Not Recovered/Not Resolved]
  - Psoriasis [Unknown]
  - Device defective [Unknown]

NARRATIVE: CASE EVENT DATE: 20210101
